FAERS Safety Report 21650820 (Version 3)
Quarter: 2022Q4

REPORT INFORMATION
  Report Type: Spontaneous
  Country: MX (occurrence: None)
  Receive Date: 20221128
  Receipt Date: 20221202
  Transmission Date: 20230113
  Serious: Yes (Other)
  Sender: FDA-Public Use
  Company Number: MX-ROCHE-3226044

PATIENT
  Sex: Female
  Weight: 70 kg

DRUGS (5)
  1. PERTUZUMAB [Suspect]
     Active Substance: PERTUZUMAB
     Indication: Breast cancer
     Dosage: DOSE AND FREQUENCY WERE NOT REPORTED - 6 CYCLES
     Route: 065
     Dates: end: 20190702
  2. TRASTUZUMAB [Suspect]
     Active Substance: TRASTUZUMAB
     Indication: Breast cancer
     Dosage: DOSE AND FREQUENCY WERE NOT REPORTED - 6 CYCLES
     Route: 065
     Dates: end: 20190702
  3. TRASTUZUMAB [Suspect]
     Active Substance: TRASTUZUMAB
     Dosage: DOSE AND FREQUENCY WERE NOT REPORTED - 16 APPLICATIONS
     Route: 065
     Dates: end: 20200302
  4. DOCETAXEL [Concomitant]
     Active Substance: DOCETAXEL
     Indication: Breast cancer
     Dosage: DOSE AND FREQUENCY WERE NOT REPORTED - 6 CYCLES
     Dates: end: 20190702
  5. PACLITAXEL [Concomitant]
     Active Substance: PACLITAXEL
     Indication: Breast cancer
     Dosage: DOSE AND FREQUENCY WERE NOT REPORTED - 4 CYCLES

REACTIONS (4)
  - Metastases to lymph nodes [Unknown]
  - Hypertension [Not Recovered/Not Resolved]
  - Breast cancer recurrent [Not Recovered/Not Resolved]
  - Metastasis [Not Recovered/Not Resolved]
